FAERS Safety Report 13710219 (Version 8)
Quarter: 2024Q2

REPORT INFORMATION
  Report Type: Other
  Country: CA (occurrence: CA)
  Receive Date: 20170703
  Receipt Date: 20240419
  Transmission Date: 20240716
  Serious: Yes (Disabling, Other)
  Sender: FDA-Public Use
  Company Number: CA-APOTEX-2017AP013547

PATIENT
  Age: 68 Year
  Sex: Female

DRUGS (45)
  1. DICLOFENAC [Suspect]
     Active Substance: DICLOFENAC
     Indication: Product used for unknown indication
     Dosage: 75 MG, BID
     Route: 048
  2. DICLOFENAC [Suspect]
     Active Substance: DICLOFENAC
     Dosage: 75 MG, UNK
     Route: 048
  3. DICLOFENAC [Suspect]
     Active Substance: DICLOFENAC
     Dosage: 1 DF, UNK
     Route: 048
  4. DICLOFENAC [Suspect]
     Active Substance: DICLOFENAC
     Dosage: 2 DF, QD
     Route: 048
  5. DICLOFENAC [Suspect]
     Active Substance: DICLOFENAC
     Dosage: UNK
     Route: 048
  6. FOLIC ACID [Suspect]
     Active Substance: FOLIC ACID
     Indication: Rheumatoid arthritis
     Dosage: UNK
     Route: 065
  7. PANTOPRAZOLE [Suspect]
     Active Substance: PANTOPRAZOLE
     Indication: Rheumatoid arthritis
     Dosage: UNK
     Route: 065
  8. PANTOPRAZOLE [Suspect]
     Active Substance: PANTOPRAZOLE
     Dosage: UNK
     Route: 048
  9. LISINOPRIL [Suspect]
     Active Substance: LISINOPRIL
     Indication: Rheumatoid arthritis
     Dosage: UNK
     Route: 065
  10. HYDROXYCHLOROQUINE [Suspect]
     Active Substance: HYDROXYCHLOROQUINE
     Indication: Rheumatoid arthritis
     Dosage: 400 MILLIGRAM, QD
     Route: 048
  11. HYDROXYCHLOROQUINE [Suspect]
     Active Substance: HYDROXYCHLOROQUINE
     Dosage: 200 MILLIGRAM, QD
     Route: 048
  12. HYDROXYCHLOROQUINE [Suspect]
     Active Substance: HYDROXYCHLOROQUINE
     Dosage: 1 DOSAGE FORM, QD
     Route: 048
  13. HYDROXYCHLOROQUINE [Suspect]
     Active Substance: HYDROXYCHLOROQUINE
     Dosage: UNK UNK, QD
     Route: 048
  14. DICLOFENAC [Suspect]
     Active Substance: DICLOFENAC
     Indication: Product used for unknown indication
     Dosage: 75 MILLIGRAM, BID
     Route: 048
  15. LISINOPRIL [Suspect]
     Active Substance: LISINOPRIL
     Indication: Product used for unknown indication
     Dosage: UNK
     Route: 065
  16. DICLOFENAC POTASSIUM [Suspect]
     Active Substance: DICLOFENAC POTASSIUM
     Indication: Rheumatoid arthritis
     Dosage: 75 MILLIGRAM
     Route: 048
  17. DICLOFENAC POTASSIUM [Suspect]
     Active Substance: DICLOFENAC POTASSIUM
     Dosage: UNK
     Route: 048
  18. DICLOFENAC POTASSIUM [Suspect]
     Active Substance: DICLOFENAC POTASSIUM
     Dosage: 75 MILLIGRAM, BID
     Route: 048
  19. SULFASALAZINE [Suspect]
     Active Substance: SULFASALAZINE
     Indication: Rheumatoid arthritis
     Dosage: 1 G, BID
     Route: 048
  20. SULFASALAZINE [Suspect]
     Active Substance: SULFASALAZINE
     Dosage: 500 MG, QD
     Route: 048
  21. SULFASALAZINE [Suspect]
     Active Substance: SULFASALAZINE
     Dosage: 500 GRAM, QD
     Route: 048
  22. SULFASALAZINE [Suspect]
     Active Substance: SULFASALAZINE
     Dosage: 2 GRAM, BID
     Route: 048
  23. SULFASALAZINE [Suspect]
     Active Substance: SULFASALAZINE
     Dosage: 2 MILLIGRAM, QD
     Route: 048
  24. METHOTREXATE SODIUM [Suspect]
     Active Substance: METHOTREXATE SODIUM
     Indication: Rheumatoid arthritis
     Dosage: 20 MG, Q.WK.
     Route: 058
  25. METHOTREXATE SODIUM [Suspect]
     Active Substance: METHOTREXATE SODIUM
     Dosage: 1 DF, Q.WK.
     Route: 058
  26. METHOTREXATE SODIUM [Suspect]
     Active Substance: METHOTREXATE SODIUM
     Dosage: 200 MILLIGRAM, QD
     Route: 058
  27. METHOTREXATE SODIUM [Suspect]
     Active Substance: METHOTREXATE SODIUM
     Dosage: 20 MILLIGRAM, QD
     Route: 058
  28. PANTOPRAZOLE MAGNESIUM [Suspect]
     Active Substance: PANTOPRAZOLE MAGNESIUM
     Indication: Product used for unknown indication
     Dosage: UNK
     Route: 065
  29. PLAQUENIL [Suspect]
     Active Substance: HYDROXYCHLOROQUINE SULFATE
     Indication: Rheumatoid arthritis
     Dosage: 200 MG, QD
     Route: 048
  30. PLAQUENIL [Suspect]
     Active Substance: HYDROXYCHLOROQUINE SULFATE
     Dosage: 1 DF, QD
     Route: 048
  31. PRINIVIL [Suspect]
     Active Substance: LISINOPRIL
     Indication: Product used for unknown indication
     Dosage: UNK
     Route: 065
  32. SYNTHROID [Suspect]
     Active Substance: LEVOTHYROXINE SODIUM
     Indication: Product used for unknown indication
     Dosage: UNK
     Route: 065
  33. VOLTAREN [Suspect]
     Active Substance: DICLOFENAC SODIUM
     Indication: Product used for unknown indication
     Dosage: 75 MG, BID
     Route: 048
  34. PANTOPRAZOLE MAGNESIUM [Suspect]
     Active Substance: PANTOPRAZOLE MAGNESIUM
     Indication: Rheumatoid arthritis
     Dosage: UNK
     Route: 065
  35. PANTOPRAZOLE MAGNESIUM [Suspect]
     Active Substance: PANTOPRAZOLE MAGNESIUM
     Dosage: UNK
     Route: 048
  36. XELJANZ [Suspect]
     Active Substance: TOFACITINIB CITRATE
     Indication: Rheumatoid arthritis
     Dosage: 5 MG, BID
     Route: 048
  37. XELJANZ [Suspect]
     Active Substance: TOFACITINIB CITRATE
     Dosage: 2 DF, QD
     Route: 048
  38. XELJANZ [Suspect]
     Active Substance: TOFACITINIB CITRATE
     Dosage: 10 MILLIGRAM, QD
     Route: 048
  39. XELJANZ [Suspect]
     Active Substance: TOFACITINIB CITRATE
     Dosage: UNK
     Route: 048
  40. VOLTAREN [Suspect]
     Active Substance: DICLOFENAC SODIUM
     Indication: Product used for unknown indication
     Dosage: UNK
     Route: 048
  41. GOLD SODIUM THIOMALATE [Suspect]
     Active Substance: GOLD SODIUM THIOMALATE
     Indication: Rheumatoid arthritis
     Dosage: 2 MILLIGRAM, QD
     Route: 065
  42. GOLD SODIUM THIOMALATE [Suspect]
     Active Substance: GOLD SODIUM THIOMALATE
     Dosage: UNK
     Route: 065
  43. CAMBIA [Suspect]
     Active Substance: DICLOFENAC POTASSIUM
     Indication: Product used for unknown indication
     Dosage: 75 MILLIGRAM, BID
     Route: 048
  44. DEPO-MEDROL [Concomitant]
     Active Substance: METHYLPREDNISOLONE ACETATE
     Indication: Product used for unknown indication
     Dosage: UNK
     Route: 030
  45. GOLD [Concomitant]
     Active Substance: GOLD
     Indication: Product used for unknown indication
     Dosage: UNK
     Route: 065

REACTIONS (15)
  - Loss of personal independence in daily activities [Not Recovered/Not Resolved]
  - Rheumatoid arthritis [Not Recovered/Not Resolved]
  - Spinal stenosis [Not Recovered/Not Resolved]
  - Condition aggravated [Not Recovered/Not Resolved]
  - Osteoarthritis [Not Recovered/Not Resolved]
  - Contusion [Not Recovered/Not Resolved]
  - Grip strength decreased [Not Recovered/Not Resolved]
  - Joint swelling [Not Recovered/Not Resolved]
  - Rotator cuff repair [Not Recovered/Not Resolved]
  - Tenderness [Not Recovered/Not Resolved]
  - Pain [Not Recovered/Not Resolved]
  - Fall [Not Recovered/Not Resolved]
  - Fatigue [Not Recovered/Not Resolved]
  - Malaise [Not Recovered/Not Resolved]
  - Treatment failure [Not Recovered/Not Resolved]
